FAERS Safety Report 4959484-2 (Version None)
Quarter: 2006Q1

REPORT INFORMATION
  Report Type: 
  Country: None (occurrence: None)
  Receive Date: 20060331
  Receipt Date: 20050228
  Transmission Date: 20060701
  Serious: Yes (Hospitalization)
  Sender: FDA-Public Use
  Company Number: US-MERCK-0510USA08419

PATIENT
  Age: 54 Year
  Sex: Male
  Weight: 66 kg

DRUGS (8)
  1. VIOXX [Suspect]
     Indication: SHOULDER PAIN
     Route: 048
     Dates: start: 19990921, end: 20020101
  2. VIOXX [Suspect]
     Route: 048
     Dates: start: 19990921, end: 20020101
  3. VIOXX [Suspect]
     Indication: NECK PAIN
     Route: 048
     Dates: start: 19990921, end: 20020101
  4. VIOXX [Suspect]
     Route: 048
     Dates: start: 19990921, end: 20020101
  5. TYLENOL (CAPLET) [Concomitant]
     Route: 065
  6. LESCOL [Concomitant]
     Route: 065
  7. ZESTRIL [Concomitant]
     Route: 065
  8. EFFEXOR [Concomitant]
     Route: 065

REACTIONS (31)
  - ANAEMIA [None]
  - ANGINA PECTORIS [None]
  - ARTERIOSCLEROSIS CORONARY ARTERY [None]
  - BENIGN PROSTATIC HYPERPLASIA [None]
  - BLEPHARITIS [None]
  - BLINDNESS TRANSIENT [None]
  - BLINDNESS UNILATERAL [None]
  - BRADYCARDIA [None]
  - CORONARY ARTERY DISEASE [None]
  - CORONARY ARTERY OCCLUSION [None]
  - EXPOSURE TO CHEMICAL POLLUTION [None]
  - EXTRADURAL ABSCESS [None]
  - GASTRIC DISORDER [None]
  - HYPERLIPIDAEMIA [None]
  - LUNG INFILTRATION [None]
  - LUNG NEOPLASM MALIGNANT [None]
  - MALARIA [None]
  - MITRAL VALVE INCOMPETENCE [None]
  - MITRAL VALVE PROLAPSE [None]
  - MYOCARDIAL INFARCTION [None]
  - MYOCARDIAL ISCHAEMIA [None]
  - PNEUMONIA [None]
  - PROSTATITIS [None]
  - PYREXIA [None]
  - RHINITIS ALLERGIC [None]
  - RIB FRACTURE [None]
  - SINUS BRADYCARDIA [None]
  - TEMPORAL ARTERITIS [None]
  - TRAUMATIC FRACTURE [None]
  - TRICUSPID VALVE INCOMPETENCE [None]
  - URINARY TRACT INFECTION [None]
